FAERS Safety Report 8952646 (Version 1)
Quarter: 2012Q4

REPORT INFORMATION
  Report Type: 
  Country: RU (occurrence: RU)
  Receive Date: 20121205
  Receipt Date: 20121205
  Transmission Date: 20130627
  Serious: Yes (Other)
  Sender: FDA-Public Use
  Company Number: RU-ASTRAZENECA-2012SE89346

PATIENT

DRUGS (1)
  1. BETALOC ZOK [Suspect]
     Route: 048

REACTIONS (2)
  - Overdose [Unknown]
  - Myoclonus [Unknown]
